FAERS Safety Report 11898032 (Version 5)
Quarter: 2016Q2

REPORT INFORMATION
  Report Type: Report from Study
  Country: CA (occurrence: CA)
  Receive Date: 20160108
  Receipt Date: 20160606
  Transmission Date: 20160815
  Serious: Yes (Hospitalization, Other)
  Sender: FDA-Public Use
  Company Number: CA-BAYER-2016-000111

PATIENT
  Age: 59 Year
  Sex: Male

DRUGS (6)
  1. STIVARGA [Suspect]
     Active Substance: REGORAFENIB
     Indication: COLORECTAL CANCER METASTATIC
     Dosage: 40 MG, QD
     Route: 048
     Dates: start: 2016, end: 20160516
  2. STIVARGA [Suspect]
     Active Substance: REGORAFENIB
     Indication: COLORECTAL CANCER METASTATIC
     Dosage: 40 MG, QD
     Route: 048
  3. PERCOCET [Concomitant]
     Active Substance: ACETAMINOPHEN\OXYCODONE HYDROCHLORIDE
  4. STIVARGA [Suspect]
     Active Substance: REGORAFENIB
     Indication: COLORECTAL CANCER METASTATIC
     Dosage: 160 MG, QD
     Route: 048
     Dates: start: 20151226, end: 201512
  5. STIVARGA [Suspect]
     Active Substance: REGORAFENIB
     Indication: COLORECTAL CANCER METASTATIC
     Dosage: 120 MG, QD
     Route: 048
  6. OXYCODONE [Concomitant]
     Active Substance: OXYCODONE

REACTIONS (13)
  - Abdominal distension [Unknown]
  - Vision blurred [Unknown]
  - Hypoacusis [Recovering/Resolving]
  - Facial pain [None]
  - Blood pressure increased [Unknown]
  - Tremor [Unknown]
  - Dry mouth [Unknown]
  - Headache [Recovered/Resolved]
  - Chest pain [Unknown]
  - Disorientation [None]
  - Muscle spasms [Unknown]
  - Therapeutic product ineffective [Unknown]
  - Renal failure [Unknown]

NARRATIVE: CASE EVENT DATE: 201512
